FAERS Safety Report 20759042 (Version 1)
Quarter: 2022Q2

REPORT INFORMATION
  Report Type: Spontaneous
  Country: US (occurrence: US)
  Receive Date: 20220427
  Receipt Date: 20220427
  Transmission Date: 20220720
  Serious: No
  Sender: FDA-Public Use
  Company Number: US-BioHaven Pharmaceuticals-2021BHV003104

PATIENT
  Age: 48 Year

DRUGS (1)
  1. NURTEC ODT [Suspect]
     Active Substance: RIMEGEPANT SULFATE
     Indication: Product used for unknown indication
     Dosage: PATIENT DID NOT WANT TO REFILL AND WANTED TO TALK TO THE PROVIDER FIRST
     Route: 065

REACTIONS (1)
  - Drug ineffective [Unknown]
